FAERS Safety Report 6249101-6 (Version None)
Quarter: 2009Q2

REPORT INFORMATION
  Report Type: 
  Country: None (occurrence: None)
  Receive Date: 20090629
  Receipt Date: 20090618
  Transmission Date: 20091009
  Serious: Yes (Other)
  Sender: FDA-Public Use
  Company Number: US-ROCHE-595750

PATIENT
  Sex: Female

DRUGS (5)
  1. PEG-INTERFERON A-2A (RO 25-8310) [Suspect]
     Indication: HEPATITIS C
     Dosage: FORM: PRE-FILLED SYRINGE
     Route: 065
     Dates: start: 20080811
  2. RIBAVIRIN [Suspect]
     Indication: HEPATITIS C
     Dosage: DIVIDED DOSES
     Route: 065
     Dates: start: 20080811
  3. NEUPOGEN [Suspect]
     Route: 065
     Dates: start: 20081001
  4. RIBAVIRIN (NON-ROCHE) [Suspect]
     Indication: HEPATITIS C
     Dosage: DRUG REPORTED AS: RIBAVIRIN ZA-12
     Route: 065
  5. PROCRIT [Suspect]
     Route: 065

REACTIONS (27)
  - ANOREXIA [None]
  - BACK PAIN [None]
  - BACTERIA URINE IDENTIFIED [None]
  - BLOOD GLUCOSE INCREASED [None]
  - CHILLS [None]
  - CONFUSIONAL STATE [None]
  - DIZZINESS [None]
  - DYSPNOEA [None]
  - FATIGUE [None]
  - FEELING ABNORMAL [None]
  - FLANK PAIN [None]
  - HAEMATURIA [None]
  - HEMICEPHALALGIA [None]
  - INSOMNIA [None]
  - MEMORY IMPAIRMENT [None]
  - NAUSEA [None]
  - NEUTROPENIA [None]
  - OROPHARYNGEAL PAIN [None]
  - PAIN IN EXTREMITY [None]
  - PALPITATIONS [None]
  - PRESYNCOPE [None]
  - PROTEINURIA [None]
  - RED BLOOD CELL COUNT DECREASED [None]
  - VAGINAL DISCHARGE [None]
  - VISUAL IMPAIRMENT [None]
  - WEIGHT DECREASED [None]
  - WHITE BLOOD CELL COUNT DECREASED [None]
